FAERS Safety Report 7134164-6 (Version None)
Quarter: 2010Q4

REPORT INFORMATION
  Report Type: 
  Country: None (occurrence: None)
  Receive Date: 20101117
  Receipt Date: 20101017
  Transmission Date: 20110411
  Serious: Yes (Hospitalization)
  Sender: FDA-Public Use
  Company Number: 021788

PATIENT
  Sex: Female

DRUGS (10)
  1. KEPPRA [Suspect]
     Dosage: UPTITRATION, UPTITRATION, DOSE INCREASE, UPTITRATED ONCE MORE, DOSE TAPERED
     Dates: start: 20060223
  2. KEPPRA [Suspect]
     Dosage: UPTITRATION, UPTITRATION, DOSE INCREASE, UPTITRATED ONCE MORE, DOSE TAPERED
     Dates: start: 20060301
  3. KEPPRA [Suspect]
     Dosage: UPTITRATION, UPTITRATION, DOSE INCREASE, UPTITRATED ONCE MORE, DOSE TAPERED
     Dates: start: 20060301
  4. FELBATOL [Suspect]
     Dates: start: 20060601
  5. FELBATOL [Suspect]
     Dates: start: 20060701
  6. PHENOBARBITAL [Concomitant]
  7. PHENYTOIN [Concomitant]
  8. TAVOR [Concomitant]
  9. SABRIL [Concomitant]
  10. ZONEGRAN [Concomitant]

REACTIONS (12)
  - BREATH HOLDING [None]
  - CONDITION AGGRAVATED [None]
  - CONVULSION [None]
  - DRUG INEFFECTIVE [None]
  - DYSPNOEA [None]
  - GENERAL PHYSICAL HEALTH DETERIORATION [None]
  - HYPOTONIA [None]
  - LISTLESS [None]
  - LOSS OF CONSCIOUSNESS [None]
  - RESTLESSNESS [None]
  - SKIN DISCOLOURATION [None]
  - SOMNOLENCE [None]
